FAERS Safety Report 24256025 (Version 3)
Quarter: 2024Q3

REPORT INFORMATION
  Report Type: Spontaneous
  Country: IT (occurrence: IT)
  Receive Date: 20240827
  Receipt Date: 20240930
  Transmission Date: 20241017
  Serious: Yes (Other)
  Sender: APELLIS PHARMACEUTICALS
  Company Number: IT-BIOVITRUM-2024-IT-011175

PATIENT
  Weight: 84 kg

DRUGS (1)
  1. PEGCETACOPLAN [Suspect]
     Active Substance: PEGCETACOPLAN
     Indication: Paroxysmal nocturnal haemoglobinuria
     Dosage: TWICE A WEEK?REPORTED HAVING BROUGHT PEGCETACOPLAN DOSES CLOSER
     Route: 058
     Dates: start: 20230309

REACTIONS (3)
  - Haemoglobinuria [Recovered/Resolved]
  - Breakthrough haemolysis [Recovered/Resolved]
  - COVID-19 [Unknown]

NARRATIVE: CASE EVENT DATE: 20240820
